FAERS Safety Report 7432425-4 (Version None)
Quarter: 2011Q2

REPORT INFORMATION
  Report Type: 
  Country: None (occurrence: None)
  Receive Date: 20110422
  Receipt Date: 20110413
  Transmission Date: 20111010
  Serious: Yes (Disabling)
  Sender: FDA-Public Use
  Company Number: BE-ASTRAZENECA-2011SE21746

PATIENT
  Age: 84 Year
  Sex: Female

DRUGS (2)
  1. ARIMIDEX [Suspect]
     Indication: BREAST CANCER
     Route: 048
  2. PEDO MEDROL [Concomitant]
     Route: 050

REACTIONS (2)
  - OSTEOARTHRITIS [None]
  - WALKING AID USER [None]
